FAERS Safety Report 9100592 (Version 1)
Quarter: 2013Q1

REPORT INFORMATION
  Report Type: Spontaneous
  Country: US (occurrence: US)
  Receive Date: 20130215
  Receipt Date: 20130215
  Transmission Date: 20140127
  Serious: Yes (Other)
  Sender: FDA-Public Use
  Company Number: US-JNJFOC-20130202893

PATIENT
  Age: 33 Year
  Sex: Male

DRUGS (3)
  1. TOPAMAX [Suspect]
     Indication: MIGRAINE WITH AURA
     Route: 048
  2. TOPAMAX [Suspect]
     Indication: MIGRAINE WITH AURA
     Route: 048
  3. TOPAMAX [Suspect]
     Indication: MIGRAINE WITH AURA
     Route: 048

REACTIONS (2)
  - Heart transplant [Unknown]
  - Dizziness [Unknown]
